FAERS Safety Report 4852753-6 (Version None)
Quarter: 2005Q4

REPORT INFORMATION
  Report Type: 
  Country: None (occurrence: None)
  Receive Date: 20051125
  Receipt Date: 20041223
  Transmission Date: 20060501
  Serious: Yes (Other)
  Sender: FDA-Public Use
  Company Number: HQWYE266028DEC04

PATIENT
  Age: 59 Year
  Sex: Male
  Weight: 127.12 kg

DRUGS (9)
  1. ZOSYN [Suspect]
     Indication: OSTEOMYELITIS
     Dosage: 4.5 G 1X PER 8 HR, INTRAVENOUS; SEE IMAGE
     Route: 042
     Dates: start: 20041101, end: 20041203
  2. ZOSYN [Suspect]
     Indication: OSTEOMYELITIS
     Dosage: 4.5 G 1X PER 8 HR, INTRAVENOUS; SEE IMAGE
     Route: 042
     Dates: start: 20041215
  3. DEPAKOTE [Concomitant]
  4. RISPERDAL [Concomitant]
  5. ZOVOR (SIMVASTATIN) [Concomitant]
  6. VITAMIN C (ASCORBIC ACID) [Concomitant]
  7. ZINC SULFATE [Concomitant]
  8. LORTAB [Concomitant]
  9. COUMADIN [Concomitant]

REACTIONS (2)
  - BACK PAIN [None]
  - NEUTROPENIA [None]
